FAERS Safety Report 17263040 (Version 1)
Quarter: 2020Q1

REPORT INFORMATION
  Report Type: Spontaneous
  Country: OM (occurrence: OM)
  Receive Date: 20200113
  Receipt Date: 20200113
  Transmission Date: 20200409
  Serious: Yes (Other)
  Sender: FDA-Public Use
  Company Number: OM-APOPHARMA-2018AP012757

PATIENT
  Age: 7 Year
  Sex: Male

DRUGS (2)
  1. FERRIPROX [Suspect]
     Active Substance: DEFERIPRONE
     Indication: THALASSAEMIA BETA
     Dosage: 75 MG/KG, UNKNOWN
     Route: 065
  2. FERRIPROX [Suspect]
     Active Substance: DEFERIPRONE
     Dosage: UNK UNK, UNKNOWN
     Route: 065

REACTIONS (4)
  - Febrile neutropenia [Unknown]
  - Lymphopenia [Unknown]
  - Neutropenia [Recovered/Resolved]
  - Agranulocytosis [Recovered/Resolved]
